FAERS Safety Report 9433286 (Version 1)
Quarter: 2013Q3

REPORT INFORMATION
  Report Type: Spontaneous
  Country: US (occurrence: US)
  Receive Date: 20130731
  Receipt Date: 20130731
  Transmission Date: 20140515
  Serious: Yes (Other)
  Sender: FDA-Public Use
  Company Number: US-ELI_LILLY_AND_COMPANY-US201307008531

PATIENT
  Age: 56 Year
  Sex: Female

DRUGS (2)
  1. HUMALOG LISPRO [Suspect]
     Dosage: UNK
  2. HUMALOG LISPRO [Suspect]
     Dosage: 2 U, SINGLE
     Dates: start: 20130720, end: 20130720

REACTIONS (7)
  - Blood glucose increased [Recovering/Resolving]
  - Pollakiuria [Unknown]
  - Nausea [Unknown]
  - Somnolence [Unknown]
  - Malaise [Unknown]
  - Thirst [Unknown]
  - Blood ketone body [Unknown]
